FAERS Safety Report 8808894 (Version 1)
Quarter: 2012Q4

REPORT INFORMATION
  Report Type: 
  Country: US (occurrence: US)
  Receive Date: 20120926
  Receipt Date: 20120926
  Transmission Date: 20130627
  Serious: No
  Sender: FDA-Public Use
  Company Number: US-BAYER-2012-085127

PATIENT

DRUGS (1)
  1. AVELOX I.V. [Suspect]
     Indication: PNEUMONIA
     Dosage: UNK
     Route: 042
     Dates: start: 20120816

REACTIONS (2)
  - Infusion site erythema [Recovering/Resolving]
  - Infusion site pruritus [Recovering/Resolving]
